FAERS Safety Report 10510493 (Version 1)
Quarter: 2014Q4

REPORT INFORMATION
  Report Type: Spontaneous
  Country: US (occurrence: None)
  Receive Date: 20141009
  Receipt Date: 20141009
  Transmission Date: 20150528
  Serious: Yes (Life-Threatening, Hospitalization)
  Sender: FDA-Public Use
  Company Number: None

PATIENT
  Age: 65 Year
  Sex: Female
  Weight: 67.59 kg

DRUGS (2)
  1. BENZOCAINE. [Suspect]
     Active Substance: BENZOCAINE
     Indication: LOCAL ANAESTHESIA
  2. BENZOCAINE. [Suspect]
     Active Substance: BENZOCAINE
     Indication: ENDOSCOPY

REACTIONS (5)
  - Chest discomfort [None]
  - Nail discolouration [None]
  - Methaemoglobinaemia [None]
  - Skin discolouration [None]
  - Oxygen saturation decreased [None]

NARRATIVE: CASE EVENT DATE: 20140929
